FAERS Safety Report 26160204 (Version 1)
Quarter: 2025Q4

REPORT INFORMATION
  Report Type: Spontaneous
  Country: GB (occurrence: GB)
  Receive Date: 20251216
  Receipt Date: 20251216
  Transmission Date: 20260117
  Serious: Yes (Other)
  Sender: CHEPLAPHARM
  Company Number: None

PATIENT

DRUGS (2)
  1. OLANZAPINE [Suspect]
     Active Substance: OLANZAPINE
  2. MELATONIN [Suspect]
     Active Substance: MELATONIN
     Indication: Adverse reaction

REACTIONS (5)
  - Speech disorder [Unknown]
  - Disability [Unknown]
  - Impaired quality of life [Unknown]
  - Movement disorder [Unknown]
  - General physical health deterioration [Unknown]
